FAERS Safety Report 18473878 (Version 3)
Quarter: 2020Q4

REPORT INFORMATION
  Report Type: Report from Study
  Country: US (occurrence: US)
  Receive Date: 20201106
  Receipt Date: 20201204
  Transmission Date: 20210114
  Serious: Yes (Hospitalization, Other)
  Sender: FDA-Public Use
  Company Number: US-B.I. PHARMACEUTICALS,INC./RIDGEFIELD-2020-BI-048597

PATIENT
  Sex: Female

DRUGS (1)
  1. OFEV [Suspect]
     Active Substance: NINTEDANIB
     Indication: IDIOPATHIC PULMONARY FIBROSIS
     Dosage: OFEV DOSE 300MG DAILY
     Route: 048
     Dates: start: 20200803

REACTIONS (11)
  - Pulmonary thrombosis [Unknown]
  - Neoplasm progression [Unknown]
  - Abdominal pain [Unknown]
  - Neoplasm malignant [Unknown]
  - Diarrhoea [Unknown]
  - Metastases to spine [Unknown]
  - Gait inability [Unknown]
  - Rhinovirus infection [Unknown]
  - Abdominal pain upper [Unknown]
  - Thrombosis [Unknown]
  - Pneumonia [Unknown]
